FAERS Safety Report 19248793 (Version 3)
Quarter: 2021Q2

REPORT INFORMATION
  Report Type: Spontaneous
  Country: US (occurrence: US)
  Receive Date: 20210512
  Receipt Date: 20210611
  Transmission Date: 20210717
  Serious: Yes (Other)
  Sender: FDA-Public Use
  Company Number: US-ASTELLAS-2021US016851

PATIENT
  Age: 67 Year
  Sex: Female

DRUGS (3)
  1. PADCEV [Suspect]
     Active Substance: ENFORTUMAB VEDOTIN-EJFV
     Dosage: UNK, MONTHLY (RECENTLY ADDED MONTHLY INFUSION)
     Route: 065
     Dates: end: 20210507
  2. MORPHINE [Suspect]
     Active Substance: MORPHINE
     Indication: PRODUCT USED FOR UNKNOWN INDICATION
     Dosage: UNK UNK, UNKNOWN FREQ.
     Route: 065
  3. PADCEV [Suspect]
     Active Substance: ENFORTUMAB VEDOTIN-EJFV
     Indication: BLADDER CANCER
     Dosage: UNK UNK, WEEKLY (3 WKS ON AND 1WK OFF)
     Route: 065
     Dates: start: 20210115

REACTIONS (8)
  - Bladder pain [Recovered/Resolved]
  - Constipation [Recovered/Resolved]
  - Cancer pain [Recovering/Resolving]
  - Nocturia [Not Recovered/Not Resolved]
  - Kidney enlargement [Not Recovered/Not Resolved]
  - Malignant neoplasm progression [Not Recovered/Not Resolved]
  - Radiation associated pain [Recovered/Resolved]
  - Poor venous access [Not Recovered/Not Resolved]

NARRATIVE: CASE EVENT DATE: 20210221
